FAERS Safety Report 5678378-0 (Version None)
Quarter: 2008Q1

REPORT INFORMATION
  Report Type: 
  Country: None (occurrence: None)
  Receive Date: 20080321
  Receipt Date: 20080317
  Transmission Date: 20080703
  Serious: Yes (Other)
  Sender: FDA-Public Use
  Company Number: 2008006634

PATIENT
  Age: 25 Year
  Sex: Female
  Weight: 70.3075 kg

DRUGS (1)
  1. LISTERINE TOOTH DEFENSE (SODIUM FLUORIDE) [Suspect]
     Indication: DENTAL DISORDER PROPHYLAXIS
     Dosage: 3/4 CAPFUL TWICE A DAY (2 IN 1D), ORAL
     Route: 048
     Dates: start: 20080305

REACTIONS (1)
  - PHARYNGEAL OEDEMA [None]
